FAERS Safety Report 14305110 (Version 1)
Quarter: 2017Q4

REPORT INFORMATION
  Report Type: Report from Study
  Country: JP (occurrence: JP)
  Receive Date: 20171219
  Receipt Date: 20171219
  Transmission Date: 20180321
  Serious: Yes (Disabling)
  Sender: FDA-Public Use
  Company Number: JP-OTSUKA-005307

PATIENT
  Age: 21 Year
  Sex: Female
  Weight: 52 kg

DRUGS (16)
  1. PREDONINE [Suspect]
     Active Substance: PREDNISOLONE
     Dosage: 5 MG, QD
     Route: 048
     Dates: start: 20081026, end: 20081028
  2. TAKEPRON [Concomitant]
     Active Substance: LANSOPRAZOLE
     Indication: PRODUCT USED FOR UNKNOWN INDICATION
     Dosage: 15 MG, QD
     Route: 048
     Dates: start: 20081016, end: 20081119
  3. ARIPIPRAZOLE. [Suspect]
     Active Substance: ARIPIPRAZOLE
     Dosage: 12 MG, QD
     Route: 048
     Dates: start: 20081203, end: 20081216
  4. LENDORMIN [Concomitant]
     Active Substance: BROTIZOLAM
     Indication: SCHIZOPHRENIA
     Dosage: 0.25 MG, QD
     Route: 048
     Dates: start: 20081028
  5. ISO-BID [Concomitant]
     Active Substance: ISOSORBIDE DINITRATE
     Indication: PRODUCT USED FOR UNKNOWN INDICATION
     Dosage: LIQUID 70%
     Route: 065
     Dates: start: 20081029
  6. ISOBIDE [Concomitant]
     Active Substance: ISOSORBIDE
     Indication: PRODUCT USED FOR UNKNOWN INDICATION
     Dosage: 44.1 G, QD
     Route: 048
     Dates: start: 20081029
  7. ARIPIPRAZOLE. [Suspect]
     Active Substance: ARIPIPRAZOLE
     Indication: SCHIZOPHRENIA
     Dosage: 6 MG, QD
     Route: 048
     Dates: start: 20081029, end: 20081111
  8. PREDONINE [Suspect]
     Active Substance: PREDNISOLONE
     Dosage: 20 MG, QD
     Route: 048
     Dates: start: 20081020, end: 20081022
  9. LOXONIN [Concomitant]
     Active Substance: LOXOPROFEN SODIUM
     Indication: PRODUCT USED FOR UNKNOWN INDICATION
     Dosage: 60 MG, QD
     Route: 048
     Dates: start: 20081016, end: 20081120
  10. PREDONINE [Suspect]
     Active Substance: PREDNISOLONE
     Indication: SUDDEN HEARING LOSS
     Dosage: 40 MG, QD
     Route: 048
     Dates: start: 20081017, end: 20081019
  11. PURSENNIDE [Concomitant]
     Active Substance: SENNOSIDES A AND B
     Indication: PRODUCT USED FOR UNKNOWN INDICATION
     Dosage: 12 MG, QD
     Route: 048
     Dates: start: 20081016, end: 20081217
  12. SENNA [Concomitant]
     Active Substance: SENNA LEAF\SENNOSIDES\SENNOSIDES A AND B
     Indication: PRODUCT USED FOR UNKNOWN INDICATION
     Dosage: UNK
     Route: 065
     Dates: start: 20081016, end: 20081217
  13. PRIMPERAN [Concomitant]
     Active Substance: METOCLOPRAMIDE HYDROCHLORIDE
     Indication: PRODUCT USED FOR UNKNOWN INDICATION
     Dosage: 15 MG, QD
     Route: 048
     Dates: start: 20081019, end: 20081030
  14. ARIPIPRAZOLE. [Suspect]
     Active Substance: ARIPIPRAZOLE
     Dosage: 9 MG, QD
     Route: 048
     Dates: start: 20081112, end: 20081202
  15. PREDONINE [Suspect]
     Active Substance: PREDNISOLONE
     Indication: SUDDEN HEARING LOSS
     Dosage: 60 MG, QD
     Route: 042
     Dates: start: 20081014, end: 20081016
  16. PREDONINE [Suspect]
     Active Substance: PREDNISOLONE
     Dosage: 10 MG, QD
     Route: 048
     Dates: start: 20081023, end: 20081025

REACTIONS (3)
  - Tremor [Recovering/Resolving]
  - Visual acuity reduced [Not Recovered/Not Resolved]
  - Muscle rigidity [Recovering/Resolving]

NARRATIVE: CASE EVENT DATE: 20081117
